FAERS Safety Report 6382082-3 (Version None)
Quarter: 2009Q3

REPORT INFORMATION
  Report Type: 
  Country: None (occurrence: None)
  Receive Date: 20090930
  Receipt Date: 20090918
  Transmission Date: 20100115
  Serious: Yes (Hospitalization)
  Sender: FDA-Public Use
  Company Number: PHHY2009JP25382

PATIENT
  Sex: Female
  Weight: 9 kg

DRUGS (2)
  1. VOLTAREN [Suspect]
     Indication: PYREXIA
     Dosage: 25MG PER DAY
     Route: 054
     Dates: start: 20090615, end: 20090615
  2. KLARICID [Concomitant]
     Dosage: UNK
     Route: 048
     Dates: start: 20090613, end: 20090615

REACTIONS (2)
  - ACCIDENTAL OVERDOSE [None]
  - BRAIN NATRIURETIC PEPTIDE INCREASED [None]
